FAERS Safety Report 8780055 (Version 1)
Quarter: 2012Q4

REPORT INFORMATION
  Report Type: 
  Country: US (occurrence: US)
  Receive Date: 20120912
  Receipt Date: 20120912
  Transmission Date: 20130627
  Serious: Yes (Hospitalization)
  Sender: FDA-Public Use
  Company Number: PHEH2011US013232

PATIENT
  Age: 64 Year
  Sex: Female

DRUGS (11)
  1. DIOVAN HCT [Suspect]
     Dosage: 1 DF, once a day
  2. DIOVAN HCT [Suspect]
     Dosage: 320 mg, UNK
  3. NORVASC                                 /DEN/ [Concomitant]
  4. B12 ^RECIP^ [Concomitant]
  5. LASIX [Concomitant]
     Dosage: 20 mg, QD
  6. GLUCOTROL [Concomitant]
  7. HYDRALAZINE [Concomitant]
  8. TOYCOR [Concomitant]
  9. ISOSORBIDE [Concomitant]
  10. TOPROL XL [Concomitant]
  11. SUGAR PILL [Concomitant]

REACTIONS (3)
  - Fluid retention [Unknown]
  - Hypertension [Unknown]
  - Unevaluable event [None]
